FAERS Safety Report 4748401-6 (Version None)
Quarter: 2005Q3

REPORT INFORMATION
  Report Type: 
  Country: None (occurrence: None)
  Receive Date: 20050818
  Receipt Date: 20050805
  Transmission Date: 20060218
  Serious: Yes (Other)
  Sender: FDA-Public Use
  Company Number: 200512901BCC

PATIENT
  Age: 64 Year
  Sex: Male
  Weight: 71.6683 kg

DRUGS (10)
  1. ALEVE [Suspect]
     Indication: BACK PAIN
     Dosage: SEE IMAGE
     Route: 048
     Dates: start: 20050701
  2. ALEVE [Suspect]
     Indication: BACK PAIN
     Dosage: SEE IMAGE
     Route: 048
     Dates: start: 20050714
  3. CIPROFLOXACIN [Suspect]
     Dosage: 500 MG, BID,
     Dates: start: 20050714
  4. FLUDROCORTISONE [Concomitant]
  5. FLOMAX [Concomitant]
  6. LIPITOR [Concomitant]
  7. BUMEX [Concomitant]
  8. PROSCAR [Concomitant]
  9. DIPYRIDAMOLE [Concomitant]
  10. SYNTHROID [Concomitant]

REACTIONS (4)
  - EPISTAXIS [None]
  - HAEMOPTYSIS [None]
  - MOUTH HAEMORRHAGE [None]
  - PHARYNGEAL HAEMORRHAGE [None]
